FAERS Safety Report 11831107 (Version 1)
Quarter: 2015Q4

REPORT INFORMATION
  Report Type: Spontaneous
  Country: US (occurrence: US)
  Receive Date: 20151214
  Receipt Date: 20151214
  Transmission Date: 20160305
  Serious: No
  Sender: FDA-Public Use
  Company Number: US-BAYER-2015-487856

PATIENT
  Age: 47 Year
  Sex: Male
  Weight: 130.16 kg

DRUGS (4)
  1. LACOSAMIDE [Concomitant]
     Active Substance: LACOSAMIDE
  2. ALEVE [Suspect]
     Active Substance: NAPROXEN SODIUM
     Dosage: 2 DF, QID
     Route: 048
     Dates: start: 201509
  3. METOPROLOL TARTRATE. [Concomitant]
     Active Substance: METOPROLOL TARTRATE
  4. LISINOPRIL. [Concomitant]
     Active Substance: LISINOPRIL

REACTIONS (4)
  - Drug ineffective [Not Recovered/Not Resolved]
  - Product use issue [None]
  - Nausea [Not Recovered/Not Resolved]
  - Product use issue [None]

NARRATIVE: CASE EVENT DATE: 201509
